FAERS Safety Report 7647568-X (Version None)
Quarter: 2011Q3

REPORT INFORMATION
  Report Type: 
  Country: None (occurrence: None)
  Receive Date: 20110801
  Receipt Date: 20110726
  Transmission Date: 20111222
  Serious: Yes (Life-Threatening, Other)
  Sender: FDA-Public Use
  Company Number: US-ASTRAZENECA-2011SE38421

PATIENT
  Age: 50 Year
  Sex: Female

DRUGS (1)
  1. SYMBICORT [Suspect]
     Dosage: 160/4.5 MCG, DAILY
     Route: 055

REACTIONS (6)
  - TOTAL LUNG CAPACITY DECREASED [None]
  - COMA [None]
  - PNEUMONIA [None]
  - DRUG DOSE OMISSION [None]
  - DYSPNOEA [None]
  - OXYGEN SATURATION DECREASED [None]
